FAERS Safety Report 4300774-4 (Version None)
Quarter: 2004Q1

REPORT INFORMATION
  Report Type: 
  Country: None (occurrence: None)
  Receive Date: 20040218
  Receipt Date: 20040203
  Transmission Date: 20041129
  Serious: Yes (Death, Hospitalization)
  Sender: FDA-Public Use
  Company Number: 2003IM000380

PATIENT
  Age: 68 Year
  Sex: Male
  Weight: 97.5234 kg

DRUGS (10)
  1. ACTIMMUNE [Suspect]
     Indication: HEPATITIS C
     Dosage: 200 UG;TIW; SUBCUTANEOUS
     Route: 058
     Dates: start: 20021017, end: 20030401
  2. VANCOMYCIN [Suspect]
     Indication: SEPSIS
  3. COUMADIN [Concomitant]
  4. LANOXIN [Concomitant]
  5. TOPROL-XL [Concomitant]
  6. PLAVIX [Concomitant]
  7. ASPIRIN [Concomitant]
  8. LASIX [Concomitant]
  9. LISINOPRIL [Concomitant]
  10. GLIPIZIDE [Concomitant]

REACTIONS (21)
  - ANAEMIA [None]
  - ASCITES [None]
  - ATRIAL FIBRILLATION [None]
  - BLOOD BILIRUBIN INCREASED [None]
  - DIASTOLIC DYSFUNCTION [None]
  - FATIGUE [None]
  - GENERALISED OEDEMA [None]
  - HEPATIC ENCEPHALOPATHY [None]
  - HEPATIC FAILURE [None]
  - HYPONATRAEMIA [None]
  - HYPOXIA [None]
  - INJECTION SITE INFECTION [None]
  - LETHARGY [None]
  - LEUKOCYTOSIS [None]
  - MENTAL STATUS CHANGES [None]
  - MITRAL VALVE INCOMPETENCE [None]
  - MULTI-ORGAN FAILURE [None]
  - RENAL FAILURE ACUTE [None]
  - RESTLESSNESS [None]
  - SEPSIS [None]
  - STAPHYLOCOCCAL BACTERAEMIA [None]
